FAERS Safety Report 24667957 (Version 1)
Quarter: 2024Q4

REPORT INFORMATION
  Report Type: Spontaneous
  Country: US (occurrence: US)
  Receive Date: 20241127
  Receipt Date: 20241127
  Transmission Date: 20250114
  Serious: Yes (Hospitalization)
  Sender: ROCHE
  Company Number: US-ROCHE-10000141877

PATIENT
  Sex: Male

DRUGS (3)
  1. ERIVEDGE [Suspect]
     Active Substance: VISMODEGIB
     Indication: Basal cell carcinoma
     Route: 048
     Dates: start: 201807
  2. ERIVEDGE [Suspect]
     Active Substance: VISMODEGIB
     Indication: Skin disorder
  3. LENACAPAVIR [Concomitant]
     Active Substance: LENACAPAVIR

REACTIONS (1)
  - Infection [Unknown]
